FAERS Safety Report 9444467 (Version 1)
Quarter: 2013Q3

REPORT INFORMATION
  Report Type: Spontaneous
  Country: US (occurrence: US)
  Receive Date: 20130807
  Receipt Date: 20130807
  Transmission Date: 20140515
  Serious: Yes (Other)
  Sender: FDA-Public Use
  Company Number: US-SANOFI-AVENTIS-2013SA078726

PATIENT
  Age: 71 Year
  Sex: Male

DRUGS (3)
  1. LANTUS [Suspect]
     Indication: DIABETES MELLITUS
     Dosage: DOSE:60 UNIT(S)
     Route: 065
  2. NOVOLOG [Suspect]
     Indication: DIABETES MELLITUS
     Dosage: SLIDING SCALE
     Route: 065
  3. NOVOLOG MIX [Suspect]
     Indication: DIABETES MELLITUS
     Dosage: DOSE: 40 UNITS AT EACH MEAL
     Route: 065

REACTIONS (6)
  - Neoplasm malignant [Unknown]
  - Cerebrovascular accident [Unknown]
  - Embolism [Unknown]
  - Memory impairment [Unknown]
  - Renal failure [Unknown]
  - Gait disturbance [Unknown]
